FAERS Safety Report 12072255 (Version 1)
Quarter: 2016Q1

REPORT INFORMATION
  Report Type: Spontaneous
  Country: US (occurrence: None)
  Receive Date: 20160211
  Receipt Date: 20160211
  Transmission Date: 20160526
  Serious: No
  Sender: FDA-Public Use
  Company Number: None

PATIENT
  Age: 55 Year
  Sex: Female

DRUGS (4)
  1. LISINOPRIL. [Concomitant]
     Active Substance: LISINOPRIL
  2. CYCLOBENZAPR [Concomitant]
  3. RIBASPHERE [Suspect]
     Active Substance: RIBAVIRIN
     Indication: ACUTE HEPATITIS C
     Dosage: 600 MG, QAM AND QPM, PO
     Route: 048
     Dates: start: 20160120
  4. HARVONI [Suspect]
     Active Substance: LEDIPASVIR\SOFOSBUVIR
     Indication: ACUTE HEPATITIS C
     Dosage: 90-400 MG, QD, PO
     Route: 048
     Dates: start: 20160118

REACTIONS (1)
  - Fatigue [None]

NARRATIVE: CASE EVENT DATE: 20160118
